FAERS Safety Report 18940952 (Version 2)
Quarter: 2021Q1

REPORT INFORMATION
  Report Type: Spontaneous
  Country: ES (occurrence: ES)
  Receive Date: 20210225
  Receipt Date: 20210226
  Transmission Date: 20210420
  Serious: Yes (Other)
  Sender: FDA-Public Use
  Company Number: ES-PFIZER INC-2021175511

PATIENT
  Age: 62 Year
  Sex: Female

DRUGS (7)
  1. ASPIRIN (E.C.) [Concomitant]
     Active Substance: ASPIRIN
     Indication: ATRIOVENTRICULAR BLOCK
  2. RAMIPRIL. [Concomitant]
     Active Substance: RAMIPRIL
     Indication: ATRIOVENTRICULAR BLOCK
  3. CARBAMAZEPINE. [Concomitant]
     Active Substance: CARBAMAZEPINE
     Dosage: 200 MG, 3X/DAY (8 HOURS)
  4. ASPIRIN (E.C.) [Concomitant]
     Active Substance: ASPIRIN
     Indication: HYPERTENSION
     Dosage: 200 MG, 1X/DAY
  5. RAMIPRIL. [Concomitant]
     Active Substance: RAMIPRIL
     Indication: HYPERTENSION
     Dosage: 2.5 MG, 1X/DAY
  6. PHENYTOIN SODIUM. [Suspect]
     Active Substance: PHENYTOIN SODIUM
     Indication: NERVOUS SYSTEM DISORDER
     Dosage: 1 G OF IV DPH IN THE FIRST 24 HOURS (500 MG IV INFUSION IN 2 HOURS; AND TWO DOSES OF 125 MG IV IN RA
     Route: 042
  7. PHENYTOIN SODIUM. [Suspect]
     Active Substance: PHENYTOIN SODIUM
     Dosage: 100 MG, 3X/DAY (100 MG/ 8 HOURS)

REACTIONS (5)
  - Myoclonus [Recovered/Resolved]
  - Prescribed overdose [Unknown]
  - Partial seizures with secondary generalisation [Recovered/Resolved]
  - Encephalopathy [Recovered/Resolved]
  - Off label use [Unknown]
